FAERS Safety Report 9444834 (Version 1)
Quarter: 2013Q3

REPORT INFORMATION
  Report Type: Spontaneous
  Country: GB (occurrence: GB)
  Receive Date: 20130807
  Receipt Date: 20130807
  Transmission Date: 20140515
  Serious: Yes (Life-Threatening)
  Sender: FDA-Public Use
  Company Number: GB-JNJFOC-20130800171

PATIENT
  Age: 45 Year
  Sex: Male
  Weight: 82 kg

DRUGS (1)
  1. PALIPERIDONE PALMITATE [Suspect]
     Indication: SCHIZOPHRENIA
     Route: 030
     Dates: start: 20130423, end: 20130718

REACTIONS (2)
  - Suicide attempt [Recovered/Resolved]
  - Depression [Recovered/Resolved with Sequelae]
